FAERS Safety Report 7661609-5 (Version None)
Quarter: 2011Q3

REPORT INFORMATION
  Report Type: 
  Country: None (occurrence: None)
  Receive Date: 20110805
  Receipt Date: 20101022
  Transmission Date: 20111222
  Serious: No
  Sender: FDA-Public Use
  Company Number: US-ABBOTT-10P-163-0680983-00

PATIENT
  Sex: Female
  Weight: 72.64 kg

DRUGS (3)
  1. METFORMIN HCL [Concomitant]
     Indication: DIABETES MELLITUS
  2. NIASPAN [Suspect]
     Dates: start: 20100401, end: 20101013
  3. NIASPAN [Suspect]
     Indication: BLOOD TRIGLYCERIDES INCREASED
     Dates: start: 20101014, end: 20101022

REACTIONS (2)
  - BURNING SENSATION [None]
  - SKIN BURNING SENSATION [None]
